FAERS Safety Report 7845469-5 (Version None)
Quarter: 2011Q4

REPORT INFORMATION
  Report Type: 
  Country: None (occurrence: None)
  Receive Date: 20111025
  Receipt Date: 20111019
  Transmission Date: 20120403
  Serious: Yes (Death, Hospitalization)
  Sender: FDA-Public Use
  Company Number: PHHY2011CA92576

PATIENT
  Age: 61 Year
  Sex: Female
  Weight: 66 kg

DRUGS (27)
  1. TRAZODONE HYDROCHLORIDE [Concomitant]
     Dosage: 200 MG AT BEDTIME
  2. LEVOTHYROXINE SODIUM [Concomitant]
     Dosage: 50 ?G DAILY
  3. SUMATRIPTAN SUCCINATE [Concomitant]
     Dosage: 50 MG AS NEEDED
  4. SULFAMETHOXAZOLE AND TRIMETHOPRIM [Concomitant]
     Dosage: 160/800 ?G DAILY FOR THE PAST 3 MO
  5. BUDESONIDE [Concomitant]
     Dosage: 200 ?G (INHALER) 2 INHALATIONS DAILY
  6. FUROSEMIDE [Concomitant]
     Dosage: 40 MG, QD
  7. LOPERAMIDE HCL [Concomitant]
     Dosage: 2 MG (100 TABLETS/MO)
  8. QUETIAPINE [Suspect]
     Dosage: 487 MG/DAY
     Dates: start: 20091001
  9. HALOPERIDOL [Suspect]
     Dosage: 20 MG AT BEDTIME
  10. QUETIAPINE [Suspect]
     Dosage: 1800 MG/DAY FOR 4 DAYS
     Dates: start: 20090901
  11. DESIPRAMINE HCL [Concomitant]
     Dosage: 25 MG, QD
  12. LORAZEPAM [Concomitant]
     Dosage: 2 MG AT BEDTIME
  13. PREDNISONE [Concomitant]
     Dosage: 7.5 MG, QD
  14. FLUCONAZOLE [Concomitant]
     Dosage: 150 MG ?1 (5-6 TIMES IN PAST 6 MO)
  15. ALENDRONATE SODIUM [Concomitant]
     Dosage: 70 MG WEEKLY
  16. CONJUGATED ESTROGEN [Concomitant]
     Dosage: 1.3 MG, QD
  17. ALBUTEROL [Concomitant]
     Dosage: 100 ?G AS NEEDED
  18. RISPERIDONE [Suspect]
     Dosage: 2 MG IN THE MORNING, 3 MG AT BEDTIME
  19. CELECOXIB [Concomitant]
     Dosage: 200 MG, BID
  20. QUETIAPINE [Suspect]
     Dosage: 400 MG AT BEDTIME
     Dates: start: 20090401, end: 20090901
  21. MOMETASONE FUROATE [Concomitant]
     Dosage: 0.05% 2 SPRAYS TWICE DAILY
  22. OMEPRAZOLE [Concomitant]
     Dosage: 20 MG, BID
  23. VENLAFAXINE [Concomitant]
     Dosage: 75 MG, BID
  24. ATORVASTATIN [Concomitant]
     Dosage: 10 MG, QD
  25. HYDROXYZINE [Concomitant]
     Dosage: 25 MG, BID
  26. CYCLOBENZAPRINE [Concomitant]
     Dosage: 10 MG AS NEEDED
  27. CHLOROQUINE DIPHOSPHATE [Concomitant]
     Dosage: 200 MG, BID

REACTIONS (24)
  - HYPOAESTHESIA [None]
  - PYREXIA [None]
  - RENAL FAILURE [None]
  - RESPIRATORY FAILURE [None]
  - APALLIC SYNDROME [None]
  - RHABDOMYOLYSIS [None]
  - GENERAL PHYSICAL HEALTH DETERIORATION [None]
  - MUSCLE RIGIDITY [None]
  - CYANOSIS [None]
  - MENTAL STATUS CHANGES [None]
  - ELECTROLYTE IMBALANCE [None]
  - BREATH SOUNDS ABNORMAL [None]
  - NEUROLEPTIC MALIGNANT SYNDROME [None]
  - LIVEDO RETICULARIS [None]
  - TACHYPNOEA [None]
  - ANXIETY [None]
  - HAEMODYNAMIC INSTABILITY [None]
  - DEATH [None]
  - HYPOTENSION [None]
  - TACHYCARDIA [None]
  - ARRHYTHMIA [None]
  - DEPRESSED LEVEL OF CONSCIOUSNESS [None]
  - LEUKOCYTOSIS [None]
  - ABDOMINAL DISTENSION [None]
